FAERS Safety Report 9918787 (Version 1)
Quarter: 2014Q1

REPORT INFORMATION
  Report Type: Spontaneous
  Country: HR (occurrence: HR)
  Receive Date: 20140224
  Receipt Date: 20140224
  Transmission Date: 20141002
  Serious: Yes (Death, Hospitalization)
  Sender: FDA-Public Use
  Company Number: HR-SA-2014SA020600

PATIENT
  Age: 39 Year
  Sex: Male
  Weight: 50 kg

DRUGS (3)
  1. FABRAZYME [Suspect]
     Indication: FABRY^S DISEASE
     Route: 042
     Dates: start: 20140122, end: 20140205
  2. RAMIPRIL [Concomitant]
  3. ANALGESICS [Concomitant]

REACTIONS (2)
  - Cerebrovascular disorder [Fatal]
  - Coma [Unknown]
